FAERS Safety Report 21749029 (Version 3)
Quarter: 2022Q4

REPORT INFORMATION
  Report Type: Spontaneous
  Country: US (occurrence: US)
  Receive Date: 20221219
  Receipt Date: 20221226
  Transmission Date: 20230113
  Serious: No
  Sender: FDA-Public Use
  Company Number: US-002147023-NVSC2022US292413

PATIENT
  Sex: Female

DRUGS (1)
  1. PROMACTA [Suspect]
     Active Substance: ELTROMBOPAG OLAMINE
     Indication: Thrombocytopenia
     Dosage: 25 MG, QD
     Route: 048
     Dates: start: 20221105

REACTIONS (8)
  - Platelet count decreased [Unknown]
  - Pain [Unknown]
  - Plicated tongue [Unknown]
  - Aptyalism [Unknown]
  - Dizziness [Unknown]
  - Pain in extremity [Unknown]
  - Arthralgia [Unknown]
  - Muscle spasms [Unknown]
